FAERS Safety Report 7691642-9 (Version None)
Quarter: 2011Q3

REPORT INFORMATION
  Report Type: 
  Country: None (occurrence: None)
  Receive Date: 20110818
  Receipt Date: 20110808
  Transmission Date: 20111222
  Serious: Yes (Other)
  Sender: FDA-Public Use
  Company Number: JP-BRISTOL-MYERS SQUIBB COMPANY-15952914

PATIENT
  Age: 42 Year
  Sex: Male

DRUGS (15)
  1. NELFINAVIR MESYLATE [Suspect]
     Indication: ANTIRETROVIRAL THERAPY
  2. EFAVIRENZ [Suspect]
     Indication: ANTIRETROVIRAL THERAPY
  3. LOPINAVIR [Suspect]
     Indication: ANTIRETROVIRAL THERAPY
  4. RALTEGRAVIR [Suspect]
     Indication: ANTIRETROVIRAL THERAPY
  5. STAVUDINE [Suspect]
     Indication: ANTIRETROVIRAL THERAPY
  6. LAMIVUDINE [Suspect]
     Indication: ANTIRETROVIRAL THERAPY
  7. ENFUVIRTIDE [Suspect]
     Indication: ANTIRETROVIRAL THERAPY
  8. DIDANOSINE [Suspect]
     Indication: ANTIRETROVIRAL THERAPY
  9. TENOFOVIR DISOPROXIL FUMARATE [Suspect]
     Indication: ANTIRETROVIRAL THERAPY
  10. INDINIVIR SULFATE [Suspect]
     Indication: ANTIRETROVIRAL THERAPY
  11. EMTRICITABINE [Suspect]
     Indication: ANTIRETROVIRAL THERAPY
  12. DARUNAVIR [Suspect]
     Indication: ANTIRETROVIRAL THERAPY
  13. ABACAVIR [Suspect]
     Indication: ANTIRETROVIRAL THERAPY
  14. ZIDOVUDINE [Suspect]
     Indication: ANTIRETROVIRAL THERAPY
  15. RITONAVIR [Suspect]
     Indication: ANTIRETROVIRAL THERAPY

REACTIONS (2)
  - PSYCHIATRIC SYMPTOM [None]
  - DRUG RESISTANCE [None]
